FAERS Safety Report 4781272-0 (Version None)
Quarter: 2005Q3

REPORT INFORMATION
  Report Type: 
  Country: None (occurrence: None)
  Receive Date: 20050928
  Receipt Date: 20050920
  Transmission Date: 20060218
  Serious: Yes (Congenital Anomaly)
  Sender: FDA-Public Use
  Company Number: NL-GLAXOSMITHKLINE-B0395142A

PATIENT
  Sex: Female

DRUGS (4)
  1. COMBIVIR [Suspect]
     Dosage: 600U PER DAY
     Dates: end: 20050221
  2. VIREAD [Suspect]
     Dosage: 245U PER DAY
  3. KALETRA [Suspect]
  4. RETROVIR [Suspect]
     Dosage: 600U PER DAY
     Dates: end: 20050222

REACTIONS (2)
  - DRUG EXPOSURE DURING PREGNANCY [None]
  - PYELOCALIECTASIS [None]
